FAERS Safety Report 8159277-1 (Version None)
Quarter: 2012Q1

REPORT INFORMATION
  Report Type: 
  Country: None (occurrence: None)
  Receive Date: 20120223
  Receipt Date: 20120217
  Transmission Date: 20120608
  Serious: Yes (Life-Threatening, Hospitalization)
  Sender: FDA-Public Use
  Company Number: DE-SANOFI-AVENTIS-2012SA010862

PATIENT
  Age: 52 Year
  Sex: Female
  Weight: 57.5 kg

DRUGS (6)
  1. DOCETAXEL [Suspect]
     Indication: HYPOPHARYNGEAL CANCER
     Route: 041
     Dates: start: 20120206, end: 20120206
  2. CISPLATIN [Suspect]
     Indication: HYPOPHARYNGEAL CANCER
     Route: 041
     Dates: start: 20120206, end: 20120206
  3. DEXAMETHASONE [Suspect]
     Indication: ANTIINFLAMMATORY THERAPY
     Route: 048
     Dates: start: 20120207, end: 20120207
  4. GRANISETRON HYDROCHLORIDE [Suspect]
     Indication: ANTIEMETIC SUPPORTIVE CARE
     Route: 042
     Dates: start: 20120206, end: 20120206
  5. LEVOFLOXACIN [Suspect]
     Indication: ANTIBIOTIC THERAPY
     Route: 048
     Dates: start: 20120206, end: 20120215
  6. QUINAPRIL HCL AND HYDROCHLOROTHIAZIDE [Concomitant]
     Dates: start: 20040101

REACTIONS (3)
  - BLOOD CREATININE INCREASED [None]
  - LEUKOPENIA [None]
  - NEUTROPENIA [None]
